FAERS Safety Report 4830612-2 (Version None)
Quarter: 2005Q4

REPORT INFORMATION
  Report Type: 
  Country: None (occurrence: None)
  Receive Date: 20051115
  Receipt Date: 20051102
  Transmission Date: 20060501
  Serious: Yes (Other)
  Sender: FDA-Public Use
  Company Number: HQWYE357602NOV05

PATIENT
  Age: 42 Year
  Sex: Male

DRUGS (2)
  1. PANTOPRAZOLE SODIUM [Suspect]
     Indication: GASTRITIS
     Dosage: 20 MG 1X PER 1 DAY ORAL
     Route: 048
     Dates: start: 20051012, end: 20051026
  2. PANTOPRAZOLE SODIUM [Suspect]
     Indication: OESOPHAGITIS
     Dosage: 20 MG 1X PER 1 DAY ORAL
     Route: 048
     Dates: start: 20051012, end: 20051026

REACTIONS (1)
  - TOXIC EPIDERMAL NECROLYSIS [None]
